FAERS Safety Report 4507808-2 (Version None)
Quarter: 2005Q1

REPORT INFORMATION
  Report Type: 
  Country: None (occurrence: None)
  Receive Date: 20041018
  Receipt Date: 20040716
  Transmission Date: 20050727
  Serious: No
  Sender: FDA-Public Use
  Company Number: 204962

PATIENT
  Age: 54 Year
  Sex: Female
  Weight: 102.9 kg

DRUGS (6)
  1. XOLAIR [Suspect]
     Indication: ASTHMA
     Dosage: 300 MG, Q4W, SUBCUTANEOUS
     Route: 058
     Dates: start: 20031020
  2. UNIPHYL [Concomitant]
  3. ADVAIR (SALMETEROL XINAFOATE, FLUTICASONE PROPIONATE) [Concomitant]
  4. ALBUTEROL (ALBUTEROL, ALBUTEROL SULFATE) [Concomitant]
  5. XOPENEX [Concomitant]
  6. RHINOCORT AQUA (BUDESONIDE) [Concomitant]

REACTIONS (1)
  - PALPITATIONS [None]
